FAERS Safety Report 24768455 (Version 2)
Quarter: 2025Q1

REPORT INFORMATION
  Report Type: Spontaneous
  Country: PL (occurrence: PL)
  Receive Date: 20241223
  Receipt Date: 20250101
  Transmission Date: 20250408
  Serious: Yes (Other)
  Sender: ABBVIE
  Company Number: PL-ASTELLAS-2024-AER-018493

PATIENT
  Age: 34 Year
  Sex: Female

DRUGS (1)
  1. MESALAMINE [Suspect]
     Active Substance: MESALAMINE
     Indication: Crohn^s disease
     Dosage: 2X2 TABS, MORNING AND EVENING?STRENGTH: 500 MILLIGRAM
     Route: 048
     Dates: start: 20231101, end: 20241007

REACTIONS (11)
  - Portal hypertensive gastropathy [Recovering/Resolving]
  - Decreased appetite [Recovering/Resolving]
  - Vomiting [Recovered/Resolved]
  - Weight decreased [Recovering/Resolving]
  - Gastric ulcer [Recovering/Resolving]
  - Asthenia [Recovering/Resolving]
  - Feeling abnormal [Recovered/Resolved]
  - Chronic gastritis [Recovering/Resolving]
  - Blood iron abnormal [Recovering/Resolving]
  - Crohn^s disease [Recovering/Resolving]
  - Haemoglobin abnormal [Recovering/Resolving]

NARRATIVE: CASE EVENT DATE: 20240101
